FAERS Safety Report 10147412 (Version 2)
Quarter: 2014Q2

REPORT INFORMATION
  Report Type: Spontaneous
  Country: NZ (occurrence: NZ)
  Receive Date: 20140501
  Receipt Date: 20140501
  Transmission Date: 20141212
  Serious: Yes (Life-Threatening, Hospitalization)
  Sender: FDA-Public Use
  Company Number: NZ-B.I. PHARMACEUTICALS,INC./RIDGEFIELD-2014-BI-15571AU

PATIENT
  Age: 65 Year
  Sex: Male
  Weight: 105 kg

DRUGS (9)
  1. PRADAXA [Suspect]
     Indication: ATRIAL FIBRILLATION
     Dosage: 300 MG
     Route: 065
     Dates: start: 20120410, end: 20121211
  2. FLIXOTIDE [Concomitant]
     Route: 065
  3. VENTOLIN [Concomitant]
     Dosage: DOSE PER APPLICATION: 100-200 MCG
     Route: 055
  4. DILTIAZEM [Concomitant]
     Dosage: 180 MG
     Route: 065
  5. SIMVASTATIN [Concomitant]
     Dosage: 40 MG
     Route: 048
  6. ACCUPRIL [Concomitant]
     Dosage: 20 MG
     Route: 048
  7. METFORMIN [Concomitant]
     Dosage: 1 G
     Route: 048
  8. AMLODIPINE [Concomitant]
     Dosage: 5 MG
     Route: 048
  9. GLICLAZIDE [Concomitant]
     Dosage: 180 MG
     Route: 048

REACTIONS (8)
  - Haemoglobin decreased [Recovered/Resolved]
  - Gastrointestinal haemorrhage [Recovered/Resolved]
  - Hypotension [Unknown]
  - Tachycardia [Unknown]
  - Gastric ulcer [Unknown]
  - Melaena [Unknown]
  - Diverticulum [Unknown]
  - Anaemia [Unknown]
